FAERS Safety Report 8853741 (Version 1)
Quarter: 2012Q4

REPORT INFORMATION
  Report Type: 
  Country: TR (occurrence: TR)
  Receive Date: 20121022
  Receipt Date: 20121022
  Transmission Date: 20130627
  Serious: Yes (Other)
  Sender: FDA-Public Use
  Company Number: TR-NOVOPROD-360977

PATIENT
  Age: 10 Year
  Sex: Female
  Weight: 35 kg

DRUGS (2)
  1. NORDITROPIN SIMPLEXX [Suspect]
     Indication: GROWTH HORMONE DEFICIENCY
     Dosage: 30 ?g/kg, qd
     Route: 065
  2. NORDITROPIN SIMPLEXX [Suspect]
     Dosage: 1.2 mg, qd
     Route: 058
     Dates: start: 20120206, end: 20120815

REACTIONS (1)
  - Papilloedema [Recovered/Resolved]
